FAERS Safety Report 19900228 (Version 1)
Quarter: 2021Q3

REPORT INFORMATION
  Report Type: Report from Study
  Country: IT (occurrence: IT)
  Receive Date: 20210929
  Receipt Date: 20210929
  Transmission Date: 20211014
  Serious: Yes (Other)
  Sender: FDA-Public Use
  Company Number: IT-MYLANLABS-2021M1066436

PATIENT
  Sex: Female
  Weight: 64 kg

DRUGS (12)
  1. RIFACOL [Concomitant]
     Active Substance: RIFAXIMIN
     Indication: DIVERTICULITIS
     Dosage: UNK
     Dates: start: 20190508
  2. PREGABALIN. [Concomitant]
     Active Substance: PREGABALIN
     Indication: PAIN IN JAW
     Dosage: UNK, ONGOING = CHECKED
     Dates: start: 20180824
  3. RANITIDINA                         /00550801/ [Concomitant]
     Dosage: UNK, ONGOING = NOT CHECKED
     Dates: start: 20160219, end: 20171229
  4. PERTUZUMAB. [Suspect]
     Active Substance: PERTUZUMAB
     Dosage: 420 MILLIGRAM, Q3W
     Route: 042
     Dates: start: 20170929
  5. BLOPRESS [Concomitant]
     Active Substance: CANDESARTAN CILEXETIL
     Indication: EJECTION FRACTION DECREASED
     Dosage: UNK, ONGOING = CHECKED
     Dates: start: 20180528
  6. TRASTUZUMAB. [Suspect]
     Active Substance: TRASTUZUMAB
     Indication: BREAST CANCER
     Dosage: 8 MILLIGRAM/SQ. METER, Q3W
     Route: 042
     Dates: start: 20170908, end: 20170908
  7. TRASTUZUMAB. [Suspect]
     Active Substance: TRASTUZUMAB
     Dosage: 6 MILLIGRAM/KILOGRAM, Q3W
     Route: 042
     Dates: start: 20170929
  8. OMEPRAZOLE. [Concomitant]
     Active Substance: OMEPRAZOLE
     Indication: GASTROOESOPHAGEAL REFLUX DISEASE
     Dosage: UNK
     Dates: start: 20190508, end: 20190522
  9. PERTUZUMAB. [Suspect]
     Active Substance: PERTUZUMAB
     Indication: BREAST CANCER
     Dosage: 840 MILLIGRAM, Q3W
     Route: 042
     Dates: start: 20170908, end: 20170908
  10. CHLORPHENAMINE [Concomitant]
     Active Substance: CHLORPHENIRAMINE MALEATE
     Dosage: UNK (ONGOING = NOT CHECKED)
     Dates: start: 20160219, end: 20171229
  11. DESAMETASONE [Concomitant]
     Active Substance: DEXAMETHASONE
     Dosage: UNK, ONGOING = CHECKED
     Dates: start: 20160219
  12. PACLITAXEL. [Suspect]
     Active Substance: PACLITAXEL
     Indication: BREAST CANCER
     Dosage: 80 MILLIGRAM/SQ. METER, QW
     Route: 042
     Dates: start: 20170908, end: 20171229

REACTIONS (11)
  - Oedema peripheral [Not Recovered/Not Resolved]
  - Microangiopathy [Not Recovered/Not Resolved]
  - Diarrhoea [Recovered/Resolved]
  - Nail infection [Recovered/Resolved]
  - Anaemia [Recovered/Resolved]
  - Gastrooesophageal reflux disease [Recovered/Resolved]
  - Thrombosis [Recovered/Resolved]
  - Diverticulitis [Recovered/Resolved]
  - Nausea [Recovered/Resolved]
  - Glossitis [Recovered/Resolved]
  - Asthenia [Recovered/Resolved]

NARRATIVE: CASE EVENT DATE: 20171111
